FAERS Safety Report 7587097-5 (Version None)
Quarter: 2011Q3

REPORT INFORMATION
  Report Type: 
  Country: None (occurrence: None)
  Receive Date: 20110701
  Receipt Date: 20110624
  Transmission Date: 20111222
  Serious: Yes (Other)
  Sender: FDA-Public Use
  Company Number: PHHY2011US57402

PATIENT
  Sex: Female

DRUGS (2)
  1. AFINITOR [Suspect]
     Indication: CARCINOID TUMOUR
     Dosage: 5 MG, QD
     Route: 048
  2. SANDOSTATIN [Suspect]
     Indication: METASTATIC CARCINOID TUMOUR

REACTIONS (3)
  - WEIGHT DECREASED [None]
  - DIARRHOEA [None]
  - NEOPLASM MALIGNANT [None]
